FAERS Safety Report 24364952 (Version 2)
Quarter: 2024Q3

REPORT INFORMATION
  Report Type: Spontaneous
  Country: US (occurrence: US)
  Receive Date: 20240926
  Receipt Date: 20240927
  Transmission Date: 20241016
  Serious: Yes (Other)
  Sender: ABBVIE
  Company Number: US-ABBVIE-5935654

PATIENT
  Sex: Female

DRUGS (1)
  1. LUPRON [Suspect]
     Active Substance: LEUPROLIDE ACETATE
     Indication: Endometriosis
     Route: 065

REACTIONS (5)
  - Cerebrovascular accident [Unknown]
  - Adverse drug reaction [Not Recovered/Not Resolved]
  - Blood pressure increased [Unknown]
  - Anxiety [Unknown]
  - Chills [Unknown]
